FAERS Safety Report 9888618 (Version 1)
Quarter: 2014Q1

REPORT INFORMATION
  Report Type: Spontaneous
  Country: US (occurrence: US)
  Receive Date: 20140211
  Receipt Date: 20140211
  Transmission Date: 20141002
  Serious: Yes (Hospitalization)
  Sender: FDA-Public Use
  Company Number: US-B.I. PHARMACEUTICALS,INC./RIDGEFIELD-2014-BI-05616BP

PATIENT
  Age: 86 Year
  Sex: Male

DRUGS (2)
  1. DULCOLAX STOOL SOFTENER [Suspect]
     Indication: CONSTIPATION
     Route: 048
     Dates: start: 201309
  2. DULCOLAX TABLETS [Suspect]
     Indication: CONSTIPATION
     Dosage: 10 MG
     Route: 048
     Dates: start: 201312, end: 201312

REACTIONS (2)
  - Inguinal hernia [Recovered/Resolved]
  - Diarrhoea [Recovered/Resolved]
